FAERS Safety Report 20949343 (Version 2)
Quarter: 2022Q3

REPORT INFORMATION
  Report Type: Spontaneous
  Country: US (occurrence: US)
  Receive Date: 20220613
  Receipt Date: 20220826
  Transmission Date: 20221026
  Serious: Yes (Other)
  Sender: FDA-Public Use
  Company Number: US-GLAXOSMITHKLINE-US2022AMR089809

PATIENT
  Sex: Female
  Weight: 75 kg

DRUGS (19)
  1. IMITREX [Suspect]
     Active Substance: SUMATRIPTAN SUCCINATE
     Indication: Headache
     Dosage: UNK
     Dates: end: 20211122
  2. NURTEC ODT [Suspect]
     Active Substance: RIMEGEPANT SULFATE
     Indication: Headache
     Dosage: UNK
     Dates: end: 20211122
  3. VENTOLIN HFA [Concomitant]
     Active Substance: ALBUTEROL SULFATE
     Indication: Wheezing
     Dosage: 2 PUFF(S), QID, 90MCG/ACTUATION
     Route: 055
  4. VENTOLIN HFA [Concomitant]
     Active Substance: ALBUTEROL SULFATE
     Indication: Dyspnoea
  5. WELLBUTRIN XL [Concomitant]
     Active Substance: BUPROPION HYDROCHLORIDE
     Indication: Product used for unknown indication
     Dosage: 1 DF, QD, 300 MG
     Route: 048
  6. CHLORHEXIDINE [Concomitant]
     Active Substance: CHLORHEXIDINE
     Indication: Product used for unknown indication
     Dosage: UNK UNK, BID, 1SML FOR 30 SECONDS AFTER BRUSHING
  7. VITAMIN D3 [Concomitant]
     Active Substance: CHOLECALCIFEROL
     Indication: Product used for unknown indication
     Dosage: 1 DF, QD,25 MEG (1 ,000 UNIT)
     Route: 048
  8. BENTYL [Concomitant]
     Active Substance: DICYCLOMINE HYDROCHLORIDE
     Indication: Abdominal pain
     Dosage: 1 DF, QID IF NEEDED, 10 MG
     Route: 048
  9. LEXAPRO [Concomitant]
     Active Substance: ESCITALOPRAM OXALATE
     Indication: Product used for unknown indication
     Dosage: 1 DF, 5 MG, AT BED TIME
     Route: 048
  10. FERROUSUL [Concomitant]
     Indication: Product used for unknown indication
     Dosage: 1 DF, QD, 325 MG (65 MG IRON) WITH BREAKFAST
     Route: 048
  11. FLONASE ALLERGY RELIEF [Concomitant]
     Active Substance: FLUTICASONE PROPIONATE
     Indication: Product used for unknown indication
     Dosage: 1 PUFF(S), QD, 50 MEG/ACTUATION, EACH NOSTRIL, SPARY, SUSPENSION
     Route: 045
  12. ADVIL [Concomitant]
     Active Substance: IBUPROFEN
     Indication: Pain
     Dosage: 1 DF, QID, 600 MG
     Route: 048
  13. MINERALS\VITAMINS [Concomitant]
     Active Substance: MINERALS\VITAMINS
     Indication: Product used for unknown indication
     Dosage: 1 DF, QD
     Route: 048
  14. BACTROBAN [Concomitant]
     Active Substance: MUPIROCIN\MUPIROCIN CALCIUM
     Indication: Product used for unknown indication
     Dosage: UNK, APPLY 1 APPLICATION TOPICALLY IF NEEDED PRN
  15. ZOFRAN-ODT [Concomitant]
     Indication: Product used for unknown indication
     Dosage: 1 DF, IF NEEDED, 4 MG
     Route: 048
  16. KENALOG [Concomitant]
     Active Substance: TRIAMCINOLONE ACETONIDE
     Indication: Product used for unknown indication
     Dosage: UNK, APPLY 1 APPLICATION TOPICALLY IF NEEDED PRN
  17. COLACE [Concomitant]
     Active Substance: DOCUSATE SODIUM
     Indication: Faeces hard
     Dosage: 100 MG, 1-2 CAPSULES
  18. CLEOCIN T [Concomitant]
     Active Substance: CLINDAMYCIN PHOSPHATE
     Indication: Product used for unknown indication
     Dosage: UNK, BID
     Route: 061
  19. ZYRTEC-D [Concomitant]
     Active Substance: CETIRIZINE HYDROCHLORIDE\PSEUDOEPHEDRINE HYDROCHLORIDE
     Indication: Product used for unknown indication
     Dosage: 1 DF, BID,5-120 MG
     Route: 048

REACTIONS (15)
  - Rectal haemorrhage [Recovered/Resolved]
  - Haematochezia [Unknown]
  - Melaena [Unknown]
  - Palpitations [Recovered/Resolved]
  - Tremor [Recovered/Resolved]
  - Condition aggravated [Unknown]
  - Gastrointestinal disorder [Unknown]
  - Abdominal pain [Recovered/Resolved]
  - Fatigue [Recovered/Resolved]
  - Dizziness [Recovered/Resolved]
  - Photophobia [Unknown]
  - Arthralgia [Recovered/Resolved]
  - Myalgia [Unknown]
  - Dyspnoea [Recovered/Resolved]
  - Dyspnoea exertional [Unknown]

NARRATIVE: CASE EVENT DATE: 20210101
